FAERS Safety Report 4882525-8 (Version None)
Quarter: 2006Q1

REPORT INFORMATION
  Report Type: 
  Country: None (occurrence: None)
  Receive Date: 20060117
  Receipt Date: 20060103
  Transmission Date: 20060701
  Serious: Yes (Hospitalization)
  Sender: FDA-Public Use
  Company Number: US-AMGEN-US163556

PATIENT
  Sex: Female
  Weight: 66.7 kg

DRUGS (11)
  1. NEULASTA [Suspect]
     Indication: CHEMOTHERAPY
     Route: 058
     Dates: start: 20051018
  2. PROCRIT [Concomitant]
     Indication: ANAEMIA OF MALIGNANT DISEASE
     Route: 058
     Dates: start: 20051121
  3. LISINOPRIL [Concomitant]
  4. HYDROCHLOROTHIAZID [Concomitant]
     Route: 048
  5. LIPITOR [Concomitant]
  6. WELCHOL [Concomitant]
  7. COUMADIN [Concomitant]
  8. CENTRUM [Concomitant]
     Route: 048
  9. FLUOROURACIL [Concomitant]
     Dates: start: 20051017
  10. EPIRUBICIN [Concomitant]
     Dates: start: 20051017
  11. CYTOXAN [Concomitant]
     Dates: start: 20051017

REACTIONS (5)
  - ANXIETY [None]
  - CARDIOMEGALY [None]
  - DYSPNOEA [None]
  - GASTROOESOPHAGEAL REFLUX DISEASE [None]
  - NON-CARDIAC CHEST PAIN [None]
